FAERS Safety Report 21222808 (Version 5)
Quarter: 2023Q2

REPORT INFORMATION
  Report Type: Report from Study
  Country: US (occurrence: US)
  Receive Date: 20220817
  Receipt Date: 20230511
  Transmission Date: 20230721
  Serious: No
  Sender: FDA-Public Use
  Company Number: US-DECIPHERA PHARMACEUTICALS LLC-2022US000649

PATIENT
  Sex: Male

DRUGS (3)
  1. QINLOCK [Suspect]
     Active Substance: RIPRETINIB
     Indication: Gastrointestinal stromal tumour
     Dosage: 150 MILLIGRAM, QD
     Dates: start: 20220304
  2. QINLOCK [Suspect]
     Active Substance: RIPRETINIB
     Dosage: UNK
  3. QINLOCK [Suspect]
     Active Substance: RIPRETINIB
     Dosage: 150 MILLIGRAM, QD
     Dates: start: 20220304

REACTIONS (18)
  - Nasopharyngitis [Recovering/Resolving]
  - Sinus headache [Recovering/Resolving]
  - Nasal congestion [Not Recovered/Not Resolved]
  - Rhinovirus infection [Recovering/Resolving]
  - Upper-airway cough syndrome [Recovering/Resolving]
  - Rhinitis allergic [Recovering/Resolving]
  - Cough [Unknown]
  - Alopecia [Unknown]
  - Constipation [Unknown]
  - Pollakiuria [Unknown]
  - Sleep disorder [Unknown]
  - Headache [Unknown]
  - Memory impairment [Unknown]
  - Blood pressure fluctuation [Unknown]
  - Dry skin [Unknown]
  - Diarrhoea [Unknown]
  - Hyperchlorhydria [Unknown]
  - Extra dose administered [Unknown]

NARRATIVE: CASE EVENT DATE: 20220101
